FAERS Safety Report 4957645-X (Version None)
Quarter: 2006Q1

REPORT INFORMATION
  Report Type: 
  Country: None (occurrence: None)
  Receive Date: 20060324
  Receipt Date: 20060309
  Transmission Date: 20060701
  Serious: No
  Sender: FDA-Public Use
  Company Number: US017057

PATIENT
  Age: 3 Year
  Sex: Female

DRUGS (1)
  1. ACTIQ [Suspect]
     Dates: start: 20060306, end: 20060309

REACTIONS (2)
  - ACCIDENTAL DRUG INTAKE BY CHILD [None]
  - SOMNOLENCE [None]
